FAERS Safety Report 5264099-5 (Version None)
Quarter: 2007Q1

REPORT INFORMATION
  Report Type: 
  Country: None (occurrence: None)
  Receive Date: 20070313
  Receipt Date: 20070302
  Transmission Date: 20070707
  Serious: Yes (Other)
  Sender: FDA-Public Use
  Company Number: US-PFIZER INC-2007005781

PATIENT
  Sex: Female
  Weight: 70.8 kg

DRUGS (4)
  1. LIPITOR [Suspect]
     Indication: BLOOD CHOLESTEROL INCREASED
  2. PREMARIN [Concomitant]
  3. BETAGAN [Concomitant]
  4. PROPRANOLOL [Concomitant]

REACTIONS (2)
  - BLINDNESS [None]
  - TRANSIENT ISCHAEMIC ATTACK [None]
